FAERS Safety Report 9709121 (Version 5)
Quarter: 2014Q1

REPORT INFORMATION
  Report Type: Spontaneous
  Country: US (occurrence: US)
  Receive Date: 20131125
  Receipt Date: 20140121
  Transmission Date: 20141002
  Serious: Yes (Other)
  Sender: FDA-Public Use
  Company Number: US-009507513-1311USA007071

PATIENT
  Sex: Female

DRUGS (8)
  1. REBETOL [Suspect]
     Indication: HEPATITIS C
     Dosage: UNK
     Route: 048
     Dates: start: 20050603, end: 20051128
  2. REBETOL [Suspect]
     Dosage: UNK
     Route: 048
     Dates: start: 2011
  3. REBETOL [Suspect]
     Dosage: DECREASED FROM 3QAM, 3 QPM TO 2 QAM AND 2 QPMUNK
     Route: 048
     Dates: start: 20131115, end: 20131117
  4. PEGINTRON [Suspect]
     Indication: HEPATITIS C
     Dosage: UNK
     Dates: start: 20131115, end: 20131117
  5. THERAPY UNSPECIFIED [Suspect]
     Indication: HEPATITIS C
     Dosage: UNK
     Dates: start: 20050101
  6. THERAPY UNSPECIFIED [Suspect]
     Dosage: UNK
     Dates: start: 2011
  7. THERAPY UNSPECIFIED [Suspect]
     Dosage: UNK
     Dates: start: 20131115, end: 20131117
  8. PEGASYS [Suspect]
     Indication: HEPATITIS C
     Dosage: UNK
     Dates: start: 200501, end: 200512

REACTIONS (25)
  - Neck surgery [Unknown]
  - Spinal fusion surgery [Unknown]
  - Musculoskeletal disorder [Unknown]
  - Dyspnoea [Unknown]
  - Red blood cell count decreased [Unknown]
  - Anaemia [Unknown]
  - Haemoglobin decreased [Unknown]
  - Dysgeusia [Unknown]
  - Drug ineffective [Unknown]
  - Therapeutic response decreased [Unknown]
  - Dyspnoea [Unknown]
  - Pain [Unknown]
  - Myalgia [Unknown]
  - Herpes simplex [Unknown]
  - Pain [Unknown]
  - Dyspnoea [Unknown]
  - Panic attack [Unknown]
  - Haemoglobin decreased [Unknown]
  - Road traffic accident [Unknown]
  - Hepatitis C [Unknown]
  - Injury [Unknown]
  - Intervertebral disc degeneration [Unknown]
  - Pain [Unknown]
  - Red blood cell count decreased [Unknown]
  - Dyspnoea [Unknown]
